FAERS Safety Report 8549400-9 (Version None)
Quarter: 2012Q3

REPORT INFORMATION
  Report Type: 
  Country: None (occurrence: None)
  Receive Date: 20120730
  Receipt Date: 20120725
  Transmission Date: 20120928
  Serious: Yes (Hospitalization)
  Sender: FDA-Public Use
  Company Number: BR-PFIZER INC-2012181003

PATIENT
  Age: 60 Year
  Sex: Female
  Weight: 85 kg

DRUGS (4)
  1. CITALOPRAM [Concomitant]
     Indication: DEPRESSION
     Dosage: 20 MG, 1X/DAY
  2. ALPRAZOLAM [Suspect]
     Dosage: 2MG, ONCE
     Route: 048
     Dates: start: 19970725
  3. ASPIRIN [Concomitant]
     Indication: ARRHYTHMIA
     Dosage: 5 MG, 1X/DAY
  4. METOPROLOL SUCCINATE [Concomitant]
     Indication: BLOOD PRESSURE
     Dosage: 25 MG, TWICE

REACTIONS (1)
  - INTRACRANIAL ANEURYSM [None]
